FAERS Safety Report 10738367 (Version 1)
Quarter: 2015Q1

REPORT INFORMATION
  Report Type: Spontaneous
  Country: US (occurrence: US)
  Receive Date: 20150126
  Receipt Date: 20150126
  Transmission Date: 20150721
  Serious: No
  Sender: FDA-Public Use
  Company Number: US-GLAXOSMITHKLINE-US2014GSK048273

PATIENT

DRUGS (2)
  1. NASAL STRIPS (NOS) [Suspect]
     Active Substance: UNSPECIFIED INGREDIENT
     Indication: NASAL CONGESTION
  2. FLONASE [Suspect]
     Active Substance: FLUTICASONE PROPIONATE
     Indication: MULTIPLE ALLERGIES
     Dosage: UNK

REACTIONS (2)
  - No adverse event [Unknown]
  - Drug ineffective [None]
